FAERS Safety Report 13773208 (Version 1)
Quarter: 2017Q3

REPORT INFORMATION
  Report Type: Spontaneous
  Country: US (occurrence: US)
  Receive Date: 20170720
  Receipt Date: 20170720
  Transmission Date: 20171127
  Serious: Yes (Other)
  Sender: FDA-Public Use
  Company Number: US-PFIZER INC-2017310217

PATIENT
  Age: 16 Year
  Sex: Male
  Weight: 75 kg

DRUGS (7)
  1. METHOTREXATE. [Concomitant]
     Active Substance: METHOTREXATE
     Indication: PROPHYLAXIS AGAINST GRAFT VERSUS HOST DISEASE
     Dosage: 5 MG/M2, UNK (DAYS +1,+3,+6,+11 POST-HCT)
  2. HYDROCORTISONE. [Concomitant]
     Active Substance: HYDROCORTISONE
     Dosage: 100 MG, UNK
  3. FLUDARABINE [Concomitant]
     Active Substance: FLUDARABINE PHOSPHATE
     Dosage: 40 MG/M2, UNK (DAYS - 5, - 4, - 3)
  4. DIPHENHYDRAMINE. [Concomitant]
     Active Substance: DIPHENHYDRAMINE
     Dosage: 50 MG, UNK
  5. TACROLIMUS. [Concomitant]
     Active Substance: TACROLIMUS
     Indication: PROPHYLAXIS AGAINST GRAFT VERSUS HOST DISEASE
     Dosage: 0.03 MG/KG, UNK (BEGINNING DAY - 1)
     Route: 042
  6. DEXTRAN [Suspect]
     Active Substance: DEXTRAN
     Indication: STEM CELL TRANSPLANT
     Dosage: UNK (8% DEXTRAN 40 PER THE DILUTIONAL WASHOUT METHOD)
  7. BUSULFAN. [Concomitant]
     Active Substance: BUSULFAN
     Dosage: 32 MG/KG, UNK (DAYS - 5, - 4, - 3)

REACTIONS (9)
  - Chest discomfort [Recovered/Resolved]
  - Urticaria [Recovered/Resolved]
  - Anaphylactic reaction [Recovered/Resolved]
  - Heart rate increased [Recovered/Resolved]
  - Blood pressure increased [Recovered/Resolved]
  - Wheezing [Recovered/Resolved]
  - Agitation [Recovered/Resolved]
  - Respiratory rate increased [Recovered/Resolved]
  - Cough [Recovered/Resolved]
